FAERS Safety Report 5975738-5 (Version None)
Quarter: 2008Q4

REPORT INFORMATION
  Report Type: 
  Country: None (occurrence: None)
  Receive Date: 20081124
  Receipt Date: 20071129
  Transmission Date: 20090506
  Serious: Yes (Hospitalization, Other)
  Sender: FDA-Public Use
  Company Number: US-WYE-H01509607

PATIENT
  Age: 53 Year
  Sex: Female

DRUGS (11)
  1. ZOSYN [Suspect]
     Indication: PNEUMONIA
     Dosage: INTRAVENOUS
     Route: 042
     Dates: start: 20071111, end: 20071121
  2. LEVSIN (HYOSCYAMINE SULFATE) [Concomitant]
  3. ALBUTEROL [Concomitant]
  4. ATROVEN (IPRATROPIUM BROMIDE) [Concomitant]
  5. CARDIZEM [Concomitant]
  6. PROZAC [Concomitant]
  7. NEURONTIN [Concomitant]
  8. PREVACID [Concomitant]
  9. FENTANYL-100 [Concomitant]
  10. VICODIN [Concomitant]
  11. ATIVAN [Concomitant]

REACTIONS (1)
  - HAEMOLYTIC ANAEMIA [None]
